FAERS Safety Report 9479618 (Version 2)
Quarter: 2013Q3

REPORT INFORMATION
  Report Type: Report from Study
  Country: BR (occurrence: BR)
  Receive Date: 20130827
  Receipt Date: 20130902
  Transmission Date: 20140515
  Serious: Yes (Other)
  Sender: FDA-Public Use
  Company Number: PHHY2013BR092155

PATIENT
  Sex: Female
  Weight: 84 kg

DRUGS (7)
  1. SANDOSTATIN LAR [Suspect]
     Indication: ACROMEGALY
     Dosage: 20 MG, MONTHLY
     Route: 030
  2. SANDOSTATIN LAR [Suspect]
     Dosage: 30 MG, MONTHLY
     Route: 030
     Dates: start: 2007
  3. PURAN T4 [Concomitant]
     Dosage: 100 MG, UNK
     Route: 030
  4. LOSARTAN [Concomitant]
     Dosage: UNK UKN, QD
  5. GLIMEPIRIDE [Concomitant]
     Dosage: UNK UKN, UNK
  6. PUTAN [Concomitant]
     Dosage: UNK UKN, UNK
  7. CABERGOLINE [Concomitant]
     Dosage: UNK UKN, UNK

REACTIONS (7)
  - Glaucoma [Not Recovered/Not Resolved]
  - Cataract [Not Recovered/Not Resolved]
  - Gallbladder disorder [Unknown]
  - Visual impairment [Not Recovered/Not Resolved]
  - Limb discomfort [Unknown]
  - Underweight [Not Recovered/Not Resolved]
  - Aggression [Unknown]
